FAERS Safety Report 12618310 (Version 9)
Quarter: 2016Q4

REPORT INFORMATION
  Report Type: Report from Study
  Country: DE (occurrence: DE)
  Receive Date: 20160803
  Receipt Date: 20161115
  Transmission Date: 20170207
  Serious: Yes (Life-Threatening, Hospitalization, Other)
  Sender: FDA-Public Use
  Company Number: PHHY2016DE102031

PATIENT
  Sex: Female
  Weight: 78 kg

DRUGS (11)
  1. BYDUREON [Concomitant]
     Active Substance: EXENATIDE
     Indication: DIABETES MELLITUS
     Dosage: 2 MG, QW
     Route: 058
     Dates: start: 201511, end: 20160715
  2. AFINITOR [Suspect]
     Active Substance: EVEROLIMUS
     Indication: BREAST CANCER METASTATIC
     Dosage: 2.5 MG, QD
     Route: 048
     Dates: start: 20160617, end: 20160626
  3. DEXAMETHASONE. [Concomitant]
     Active Substance: DEXAMETHASONE
     Indication: PRODUCT USED FOR UNKNOWN INDICATION
     Dosage: UNK
     Route: 065
     Dates: start: 201511
  4. BISOPROLOL [Concomitant]
     Active Substance: BISOPROLOL
     Indication: PRODUCT USED FOR UNKNOWN INDICATION
     Dosage: 5 MG, QD, 1-0-0
     Route: 065
     Dates: start: 201511
  5. RAMIPRIL + HIDROCLOROTIAZIDA [Concomitant]
     Active Substance: HYDROCHLOROTHIAZIDE\RAMIPRIL
     Indication: PRODUCT USED FOR UNKNOWN INDICATION
     Dosage: 5 MG, QD, 1-0-0
     Route: 065
     Dates: start: 201511
  6. DEKRISTOL [Concomitant]
     Active Substance: CHOLECALCIFEROL
     Indication: PRODUCT USED FOR UNKNOWN INDICATION
     Dosage: UNK UNK, BIW (SUNDAY AND WEDNESDAY)
     Route: 065
     Dates: start: 201511
  7. EXEMESTANE. [Concomitant]
     Active Substance: EXEMESTANE
     Indication: BREAST CANCER METASTATIC
     Dosage: 25 MG, QD
     Route: 048
     Dates: start: 20160617, end: 20160728
  8. METFORMIN [Concomitant]
     Active Substance: METFORMIN HYDROCHLORIDE
     Indication: DIABETES MELLITUS
     Dosage: 500 MG, QID, 2-0-2
     Route: 065
     Dates: start: 201511
  9. JANUVIA [Concomitant]
     Active Substance: SITAGLIPTIN PHOSPHATE
     Indication: DIABETES MELLITUS
     Dosage: 50 MG, BID, 1-0-1
     Route: 065
     Dates: start: 201511
  10. AFINITOR [Suspect]
     Active Substance: EVEROLIMUS
     Dosage: 5 MG, QD
     Route: 048
     Dates: start: 20160627, end: 20160714
  11. XGEVA [Concomitant]
     Active Substance: DENOSUMAB
     Indication: OSTEOPOROSIS
     Dosage: 120 MG, (EVERY THREE MONTHS)
     Route: 058
     Dates: start: 20160413

REACTIONS (24)
  - General physical health deterioration [Unknown]
  - Blood creatinine increased [Unknown]
  - Skin turgor decreased [Unknown]
  - Dizziness [Unknown]
  - Nausea [Unknown]
  - Stomatitis [Recovered/Resolved]
  - Acute kidney injury [Recovering/Resolving]
  - Bronchitis [Unknown]
  - C-reactive protein decreased [Unknown]
  - Diabetes mellitus [Unknown]
  - Hyperglycaemia [Unknown]
  - Chapped lips [Unknown]
  - Vomiting [Unknown]
  - Metabolic acidosis [Unknown]
  - Diarrhoea [Unknown]
  - Diabetic ketoacidosis [Unknown]
  - Tachycardia [Unknown]
  - Urinary tract infection fungal [Unknown]
  - Hyperosmolar hyperglycaemic state [Recovered/Resolved]
  - Dehydration [Unknown]
  - Tongue dry [Unknown]
  - Hypertensive crisis [Unknown]
  - Tachypnoea [Unknown]
  - Pyrexia [Unknown]

NARRATIVE: CASE EVENT DATE: 201607
